FAERS Safety Report 14739194 (Version 1)
Quarter: 2018Q2

REPORT INFORMATION
  Report Type: Spontaneous
  Country: FR (occurrence: FR)
  Receive Date: 20180410
  Receipt Date: 20180410
  Transmission Date: 20180711
  Serious: Yes (Death, Other)
  Sender: FDA-Public Use
  Company Number: FR-CIPLA LTD.-2018FR14871

PATIENT

DRUGS (6)
  1. DOXORUBICIN HYDROCHLORIDE. [Suspect]
     Active Substance: DOXORUBICIN HYDROCHLORIDE
     Indication: HEPATOBLASTOMA
     Dosage: OF 1.25 MG/KG/DAY IV X 2 DAYS OVER 15 MIN
     Route: 065
  2. CYCLOPHOSPHAMIDE. [Suspect]
     Active Substance: CYCLOPHOSPHAMIDE
     Indication: HEPATOBLASTOMA
     Dosage: 40 MG/KG/DAY IV X 1 DAY OVER 1 H
     Route: 042
  3. IFOSFAMIDE. [Suspect]
     Active Substance: IFOSFAMIDE
     Indication: HEPATOBLASTOMA
     Dosage: UNK
     Route: 065
  4. CARBOPLATIN. [Suspect]
     Active Substance: CARBOPLATIN
     Indication: HEPATOBLASTOMA
     Dosage: UNK
     Route: 065
  5. VINCRISTINE [Suspect]
     Active Substance: VINCRISTINE
     Indication: HEPATOBLASTOMA
     Dosage: 0.025 MG/KG/DAY IV X 1 AS BOLUS
     Route: 040
  6. ETOPOSIDE. [Suspect]
     Active Substance: ETOPOSIDE
     Indication: HEPATOBLASTOMA
     Dosage: 3.3 MG/KG/DAY IV OVER 1 H X 5 DAYS
     Route: 042

REACTIONS (2)
  - Hepatoblastoma [Fatal]
  - Malignant neoplasm progression [Unknown]
